FAERS Safety Report 8950592 (Version 1)
Quarter: 2012Q4

REPORT INFORMATION
  Report Type: 
  Country: IN (occurrence: IN)
  Receive Date: 20121207
  Receipt Date: 20121207
  Transmission Date: 20130627
  Serious: Yes (Death)
  Sender: FDA-Public Use
  Company Number: IN-MERCK-1212IND002071

PATIENT
  Sex: Female

DRUGS (2)
  1. VIRAFERONPEG [Suspect]
     Dosage: 50 Microgram, qw
  2. REBETOL [Suspect]

REACTIONS (1)
  - Cardiac disorder [Fatal]
